FAERS Safety Report 9997388 (Version 1)
Quarter: 2014Q1

REPORT INFORMATION
  Report Type: Spontaneous
  Country: US (occurrence: US)
  Receive Date: 20140311
  Receipt Date: 20140311
  Transmission Date: 20141002
  Serious: Yes (Other)
  Sender: FDA-Public Use
  Company Number: US-TAKEDA-2014TUS001684

PATIENT
  Sex: 0

DRUGS (6)
  1. BRINTELLIX [Suspect]
     Indication: MAJOR DEPRESSION
     Dosage: 10 MG, QD
     Route: 048
     Dates: start: 201402, end: 20140306
  2. TOPAMAX [Concomitant]
     Dosage: UNK
  3. PROPRANOLOL [Concomitant]
     Dosage: UNK
  4. TRIAZOLAM [Concomitant]
     Dosage: UNK
  5. ALPRAZOLAM [Concomitant]
     Dosage: UNK
  6. MAGNESIUM [Concomitant]
     Dosage: UNK

REACTIONS (1)
  - Convulsion [Unknown]
